FAERS Safety Report 17629362 (Version 2)
Quarter: 2020Q3

REPORT INFORMATION
  Report Type: Spontaneous
  Country: US (occurrence: US)
  Receive Date: 20200406
  Receipt Date: 20200703
  Transmission Date: 20201102
  Serious: Yes (Other)
  Sender: FDA-Public Use
  Company Number: US-VISTAPHARM, INC.-VER202003-000709

PATIENT
  Age: 51 Year
  Sex: Female

DRUGS (2)
  1. VALPROIC ACID. [Suspect]
     Active Substance: VALPROIC ACID
     Indication: FOCAL DYSCOGNITIVE SEIZURES
     Dosage: 500 MG (EXTENDED?RELEASE)
  2. LAMOTRIGINE. [Suspect]
     Active Substance: LAMOTRIGINE
     Indication: FOCAL DYSCOGNITIVE SEIZURES
     Dosage: 400 MG (EVERY MORNING) AND 200 MG (EVERY NIGHT AT BEDTIME)

REACTIONS (6)
  - Delusion [Unknown]
  - Drug interaction [Recovered/Resolved]
  - Delirium [Recovered/Resolved]
  - Hallucination, visual [Unknown]
  - Toxicity to various agents [Unknown]
  - Consciousness fluctuating [Unknown]
